FAERS Safety Report 7908416-3 (Version None)
Quarter: 2011Q4

REPORT INFORMATION
  Report Type: 
  Country: None (occurrence: None)
  Receive Date: 20111111
  Receipt Date: 20111101
  Transmission Date: 20120403
  Serious: Yes (Hospitalization)
  Sender: FDA-Public Use
  Company Number: CA-JNJFOC-20111102220

PATIENT
  Sex: Female
  Weight: 75 kg

DRUGS (5)
  1. PLAQUENIL [Concomitant]
  2. SYNTHROID [Concomitant]
  3. REMICADE [Suspect]
     Indication: RHEUMATOID ARTHRITIS
     Route: 042
     Dates: start: 20081201
  4. RISEDRONATE SODIUM [Concomitant]
  5. PREDNISONE TAB [Concomitant]

REACTIONS (1)
  - NEPHROLITHIASIS [None]
